FAERS Safety Report 4658959-3 (Version None)
Quarter: 2005Q2

REPORT INFORMATION
  Report Type: 
  Country: None (occurrence: None)
  Receive Date: 20050509
  Receipt Date: 20050427
  Transmission Date: 20051028
  Serious: No
  Sender: FDA-Public Use
  Company Number: 05P-167-0296122-00

PATIENT
  Sex: Male
  Weight: 3.1 kg

DRUGS (3)
  1. KALETRA [Suspect]
     Dosage: PER ORAL
     Route: 048
  2. TENOFOVIR DISOPROXILFUMARATE [Suspect]
     Dosage: PER ORAL
     Route: 048
  3. DIDANOSINE [Suspect]
     Dosage: PER ORAL
     Route: 048

REACTIONS (2)
  - DRUG EXPOSURE DURING PREGNANCY [None]
  - TRISOMY 8 [None]
